FAERS Safety Report 7192374-6 (Version None)
Quarter: 2010Q4

REPORT INFORMATION
  Report Type: 
  Country: None (occurrence: None)
  Receive Date: 20101223
  Receipt Date: 20100824
  Transmission Date: 20110411
  Serious: Yes (Other)
  Sender: FDA-Public Use
  Company Number: US-AMGEN-QUU430761

PATIENT

DRUGS (7)
  1. ENBREL [Suspect]
     Indication: PRODUCT USED FOR UNKNOWN INDICATION
     Dosage: 50 MG, QWK
     Route: 058
     Dates: start: 20080116, end: 20100719
  2. OMEPRAZOLE [Concomitant]
     Dosage: 20 MG, QD
  3. FOLIC ACID [Concomitant]
     Dosage: 1 MG, QD
  4. METOCLOPRAMIDE [Concomitant]
     Dosage: 5 MG, QD
  5. METHOTREXATE [Concomitant]
     Dosage: 15 MG, QWK
  6. ACETYLSALICYLIC ACID [Concomitant]
  7. MULTI-VITAMINS [Concomitant]

REACTIONS (3)
  - EXTRANODAL MARGINAL ZONE B-CELL LYMPHOMA (MALT TYPE) [None]
  - HYPOAESTHESIA [None]
  - JOINT STIFFNESS [None]
